FAERS Safety Report 6066426-8 (Version None)
Quarter: 2009Q1

REPORT INFORMATION
  Report Type: 
  Country: None (occurrence: None)
  Receive Date: 20090205
  Receipt Date: 20090130
  Transmission Date: 20090719
  Serious: Yes (Death, Other)
  Sender: FDA-Public Use
  Company Number: TR-WYE-H07337308

PATIENT
  Sex: Female
  Weight: 65 kg

DRUGS (4)
  1. TAZOCIN [Suspect]
     Indication: PNEUMONIA
     Route: 042
     Dates: start: 20081005, end: 20081019
  2. TPN [Concomitant]
     Indication: NUTRITIONAL SUPPORT
     Dosage: UNKNOWN
     Route: 042
  3. MEPAMIDE [Concomitant]
     Indication: VOMITING
     Dosage: UNKNOWN
     Route: 030
  4. ULCURAN [Concomitant]
     Indication: PROPHYLAXIS AGAINST GASTROINTESTINAL ULCER
     Dosage: UNKNOWN
     Route: 030

REACTIONS (2)
  - CARDIO-RESPIRATORY ARREST [None]
  - THROMBOCYTOPENIA [None]
